FAERS Safety Report 7955107-9 (Version None)
Quarter: 2011Q4

REPORT INFORMATION
  Report Type: 
  Country: None (occurrence: None)
  Receive Date: 20111202
  Receipt Date: 20111128
  Transmission Date: 20120403
  Serious: Yes (Death)
  Sender: FDA-Public Use
  Company Number: US-CELGENEUS-163-21880-11102497

PATIENT
  Sex: Male
  Weight: 91.708 kg

DRUGS (13)
  1. REVLIMID [Suspect]
     Dosage: 15 MILLIGRAM
     Route: 048
     Dates: start: 20100501
  2. NEURONTIN [Concomitant]
     Dosage: 400 MILLIGRAM
     Route: 065
  3. REVLIMID [Suspect]
     Dosage: 15 MILLIGRAM
     Route: 048
     Dates: start: 20081101
  4. REVLIMID [Suspect]
     Dosage: 10 MILLIGRAM
     Route: 048
     Dates: start: 20110801
  5. NEURONTIN [Concomitant]
     Dosage: 100 MILLIGRAM
     Route: 065
  6. VICODIN [Concomitant]
     Route: 065
  7. LOVENOX [Concomitant]
     Indication: ANTICOAGULANT THERAPY
     Route: 065
  8. DULCOLAX [Concomitant]
     Route: 065
  9. COUMADIN [Concomitant]
     Route: 065
  10. CLONAZEPAM [Concomitant]
     Dosage: .5 MILLIGRAM
     Route: 065
  11. PRILOSEC [Concomitant]
     Dosage: 10 MILLIGRAM
     Route: 065
  12. ALDACTONE [Concomitant]
     Dosage: 50 MILLIGRAM
     Route: 065
  13. LASIX [Concomitant]
     Dosage: 40 MILLIGRAM
     Route: 065

REACTIONS (1)
  - MYELODYSPLASTIC SYNDROME [None]
